FAERS Safety Report 25918613 (Version 1)
Quarter: 2025Q4

REPORT INFORMATION
  Report Type: Other
  Country: CO (occurrence: CO)
  Receive Date: 20251014
  Receipt Date: 20251014
  Transmission Date: 20260118
  Serious: Yes (Other)
  Sender: EMD SERONO INC
  Company Number: CO-Merck Healthcare KGaA-2025051140

PATIENT
  Age: 31 Year
  Sex: Female
  Weight: 70 kg

DRUGS (2)
  1. LEVOTHYROXINE [Suspect]
     Active Substance: LEVOTHYROXINE
     Indication: Hypothyroidism
  2. LEVOTHYROXINE [Suspect]
     Active Substance: LEVOTHYROXINE

REACTIONS (8)
  - Abortion spontaneous [Recovered/Resolved]
  - Decompensated hypothyroidism [Recovering/Resolving]
  - Ovarian rupture [Unknown]
  - Ovarian hyperstimulation syndrome [Unknown]
  - Adnexal torsion [Unknown]
  - Peripheral artery thrombosis [Recovering/Resolving]
  - Treatment noncompliance [Unknown]
  - Maternal exposure during pregnancy [Recovered/Resolved]
